FAERS Safety Report 4546020-8 (Version None)
Quarter: 2005Q1

REPORT INFORMATION
  Report Type: 
  Country: None (occurrence: None)
  Receive Date: 20050103
  Receipt Date: 20041216
  Transmission Date: 20050727
  Serious: Yes (Hospitalization, Other)
  Sender: FDA-Public Use
  Company Number: 2004BI001641

PATIENT
  Age: 53 Year
  Sex: Female
  Weight: 99.7913 kg

DRUGS (4)
  1. AVONEX [Suspect]
     Indication: MULTIPLE SCLEROSIS
     Dosage: 30 UG;QW;IM
     Route: 030
     Dates: start: 19980101, end: 20030101
  2. AVONEX [Suspect]
     Indication: MULTIPLE SCLEROSIS
     Dosage: 30 U G;QW;IM
     Route: 030
     Dates: start: 20030101, end: 20041213
  3. TOPAMAX [Concomitant]
  4. BACLOFEN [Concomitant]

REACTIONS (3)
  - BRONCHITIS [None]
  - LIVER DISORDER [None]
  - PLEURISY [None]
